FAERS Safety Report 13625205 (Version 1)
Quarter: 2017Q2

REPORT INFORMATION
  Report Type: Spontaneous
  Country: GB (occurrence: GB)
  Receive Date: 20170608
  Receipt Date: 20170608
  Transmission Date: 20170830
  Serious: Yes (Hospitalization, Other)
  Sender: FDA-Public Use
  Company Number: GB-ACCORD-052345

PATIENT
  Age: 89 Year
  Sex: Female

DRUGS (17)
  1. BUMETANIDE. [Concomitant]
     Active Substance: BUMETANIDE
  2. CALCIUM CARBONATE/CALCIUM LACTOGLUCONATE [Concomitant]
  3. PARACETAMOL [Concomitant]
     Active Substance: ACETAMINOPHEN
     Indication: ARTHRALGIA
     Dosage: 1000 MG, AS NECESSARY, 4 TIMES A DAY
  4. VISCOTEARS [Concomitant]
     Active Substance: CARBOMER
     Dosage: UNK
  5. LERCANIDIPINE [Concomitant]
     Active Substance: LERCANIDIPINE
     Indication: BLOOD PRESSURE ABNORMAL
     Dosage: 10 MG, QD
  6. LEVOTHYROXINE. [Concomitant]
     Active Substance: LEVOTHYROXINE
     Indication: HYPOTHYROIDISM
     Dosage: 50 MG, QD
  7. PROLIA [Suspect]
     Active Substance: DENOSUMAB
     Indication: MYALGIA
     Dosage: 60 MG, Q6MO
     Route: 065
     Dates: start: 20160314
  8. ADCAL-D3 [Concomitant]
     Active Substance: CALCIUM CARBONATE\CHOLECALCIFEROL
     Dosage: 2 DF, BID
  9. RANITIDINE. [Concomitant]
     Active Substance: RANITIDINE
     Dosage: 300 MG, QD
  10. SIMVASTATIN. [Suspect]
     Active Substance: SIMVASTATIN
     Indication: BLOOD CHOLESTEROL INCREASED
  11. MIRTAZAPINE. [Suspect]
     Active Substance: MIRTAZAPINE
     Indication: PRODUCT USED FOR UNKNOWN INDICATION
     Dosage: 30 MG, QD
     Route: 065
  12. AMOXICILLIN. [Concomitant]
     Active Substance: AMOXICILLIN
     Dosage: 500 MG, TID
  13. ACETYLSALICYLIC ACID [Concomitant]
     Active Substance: ASPIRIN
     Dosage: 75 MG, QD
  14. BENDROFLUMETHIAZIDE [Concomitant]
     Active Substance: BENDROFLUMETHIAZIDE
     Dosage: 2.5 MG, QD
  15. SYSTANE (HYPROMELLOSE 2910 (4000 MPA.S)) [Concomitant]
     Active Substance: HYPROMELLOSE 2910 (4000 MPA.S)
     Dosage: UNK
  16. OTOMIZE [Concomitant]
     Active Substance: DEXAMETHASONE\NEOMYCIN SULFATE
     Route: 050
  17. ERGOCALCIFEROL. [Concomitant]
     Active Substance: ERGOCALCIFEROL

REACTIONS (19)
  - Peripheral swelling [Unknown]
  - Constipation [Not Recovered/Not Resolved]
  - Atrial fibrillation [Not Recovered/Not Resolved]
  - Electrocardiogram T wave inversion [Unknown]
  - Rash macular [Not Recovered/Not Resolved]
  - Confusional state [Not Recovered/Not Resolved]
  - Hypoacusis [Not Recovered/Not Resolved]
  - Blood cholesterol increased [Unknown]
  - Muscle spasms [Unknown]
  - Escherichia sepsis [Recovered/Resolved]
  - Temporal arteritis [Unknown]
  - Contusion [Unknown]
  - Back pain [Unknown]
  - Blood phosphorus decreased [Recovered/Resolved]
  - Pain in extremity [Not Recovered/Not Resolved]
  - Blood potassium decreased [Recovered/Resolved]
  - Conjunctival haemorrhage [Unknown]
  - Pigmentation disorder [Not Recovered/Not Resolved]
  - Somnolence [Unknown]

NARRATIVE: CASE EVENT DATE: 2016
